FAERS Safety Report 5625904-3 (Version None)
Quarter: 2008Q1

REPORT INFORMATION
  Report Type: 
  Country: None (occurrence: None)
  Receive Date: 20080211
  Receipt Date: 20080131
  Transmission Date: 20080703
  Serious: Yes (Hospitalization)
  Sender: FDA-Public Use
  Company Number: 18322

PATIENT
  Sex: Male

DRUGS (1)
  1. CARBOPLATIN [Suspect]

REACTIONS (3)
  - ANAEMIA [None]
  - RENAL FAILURE ACUTE [None]
  - THROMBOCYTOPENIA [None]
